FAERS Safety Report 6501818-1 (Version None)
Quarter: 2009Q4

REPORT INFORMATION
  Report Type: 
  Country: None (occurrence: None)
  Receive Date: 20091216
  Receipt Date: 20091209
  Transmission Date: 20100525
  Serious: Yes (Other)
  Sender: FDA-Public Use
  Company Number: CHPA2009US23201

PATIENT
  Age: 34 Year
  Sex: Female

DRUGS (1)
  1. MAALOX ANTACID TABSEXTRA STR. UNKNOWN (NCH) [Suspect]
     Indication: GASTROOESOPHAGEAL REFLUX DISEASE
     Dosage: UNK, DAILY
     Route: 048

REACTIONS (16)
  - ARTHRALGIA [None]
  - BLOOD ALKALINE PHOSPHATASE INCREASED [None]
  - BLOOD PHOSPHORUS DECREASED [None]
  - BONE MARROW OEDEMA [None]
  - FIBULA FRACTURE [None]
  - GAIT DISTURBANCE [None]
  - HAEMOGLOBIN DECREASED [None]
  - HIP FRACTURE [None]
  - HYPOPHOSPHATAEMIA [None]
  - INTENTIONAL DRUG MISUSE [None]
  - MOBILITY DECREASED [None]
  - MUSCULOSKELETAL CHEST PAIN [None]
  - OSTEOMALACIA [None]
  - OSTEOPENIA [None]
  - PAIN IN EXTREMITY [None]
  - RIB FRACTURE [None]
